FAERS Safety Report 7462005-6 (Version None)
Quarter: 2011Q2

REPORT INFORMATION
  Report Type: 
  Country: None (occurrence: None)
  Receive Date: 20110506
  Receipt Date: 20110427
  Transmission Date: 20111010
  Serious: Yes (Hospitalization)
  Sender: FDA-Public Use
  Company Number: PHHY2011JP16272

PATIENT
  Sex: Female
  Weight: 51 kg

DRUGS (11)
  1. CONIEL [Concomitant]
     Indication: HYPERTENSION
     Dosage: 12 MG, UNK
     Route: 048
     Dates: start: 20091120, end: 20100218
  2. ADALAT CC [Concomitant]
     Indication: HYPERTENSION
     Dosage: 20 MG, UNK
     Route: 048
     Dates: start: 20090109
  3. ADALAT CC [Concomitant]
     Dosage: 40 MG, UNK
     Route: 048
  4. CO-DIOVAN [Suspect]
     Indication: HYPERTENSION
     Dosage: 1 DF, DAILY
     Route: 048
     Dates: start: 20090410
  5. CO-DIOVAN [Suspect]
     Dosage: 1 DF, DAILY
     Route: 048
     Dates: start: 20100831
  6. D ALFA [Concomitant]
     Dosage: 0.5 UG, UNK
     Route: 048
     Dates: start: 20060506
  7. ASPARA-CA [Concomitant]
     Dosage: 200 MG, UNK
     Route: 048
     Dates: start: 20060506
  8. ADALAT CC [Concomitant]
     Dosage: 40 MG, UNK
     Route: 048
  9. ETIZOLAM [Concomitant]
     Dosage: 0.5 MG, UNK
     Route: 048
     Dates: start: 20060506
  10. LOXOT [Concomitant]
     Dosage: 60 MG, UNK
     Route: 048
     Dates: start: 20060506
  11. PROTECADIN [Concomitant]
     Dosage: 5 MG, UNK
     Route: 048
     Dates: start: 20060506

REACTIONS (2)
  - INTESTINAL HAEMATOMA [None]
  - GLYCOSYLATED HAEMOGLOBIN INCREASED [None]
